FAERS Safety Report 6149884-X (Version None)
Quarter: 2009Q2

REPORT INFORMATION
  Report Type: 
  Country: None (occurrence: None)
  Receive Date: 20090409
  Receipt Date: 20090403
  Transmission Date: 20091009
  Serious: Yes (Death)
  Sender: FDA-Public Use
  Company Number: US-PURDUE-USA_2009_0037259

PATIENT
  Age: 96 Year
  Sex: Female

DRUGS (1)
  1. OXYCONTIN [Suspect]
     Indication: FRACTURE
     Dosage: UNK MG, UNK
     Route: 048

REACTIONS (1)
  - DEATH [None]
